FAERS Safety Report 15340300 (Version 3)
Quarter: 2018Q4

REPORT INFORMATION
  Report Type: Spontaneous
  Country: US (occurrence: US)
  Receive Date: 20180831
  Receipt Date: 20181004
  Transmission Date: 20190204
  Serious: Yes (Hospitalization, Other)
  Sender: FDA-Public Use
  Company Number: US-IMPAX LABORATORIES, INC-2018-IPXL-02806

PATIENT
  Sex: Female

DRUGS (2)
  1. RYTARY [Suspect]
     Active Substance: CARBIDOPA\LEVODOPA
     Dosage: 36.25/145 MG, ONE CAPSULE, THREE TIMES A DAY
     Route: 048
     Dates: start: 2018
  2. RYTARY [Suspect]
     Active Substance: CARBIDOPA\LEVODOPA
     Indication: PARKINSON^S DISEASE
     Dosage: 23.75/95 MG, ONE CPASULE, THREE TIMES A DAY
     Route: 048
     Dates: start: 201801, end: 2018

REACTIONS (11)
  - Gastrooesophageal reflux disease [Unknown]
  - Muscular weakness [Unknown]
  - Dehydration [Recovered/Resolved]
  - Blood pressure orthostatic decreased [Recovered/Resolved]
  - Balance disorder [Unknown]
  - Speech disorder [Not Recovered/Not Resolved]
  - Asthenia [Unknown]
  - Blood pressure increased [Unknown]
  - Constipation [Unknown]
  - Trigeminal neuralgia [Unknown]
  - Tremor [Not Recovered/Not Resolved]

NARRATIVE: CASE EVENT DATE: 2018
